FAERS Safety Report 8727570 (Version 2)
Quarter: 2013Q3

REPORT INFORMATION
  Report Type: Report from Study
  Country: US (occurrence: US)
  Receive Date: 20120816
  Receipt Date: 20130702
  Transmission Date: 20140515
  Serious: Yes (Other)
  Sender: FDA-Public Use
  Company Number: US-ACTELION-A-US2012-68480

PATIENT
  Age: 73 Year
  Sex: Female

DRUGS (3)
  1. TRACLEER [Suspect]
     Indication: PULMONARY ARTERIAL HYPERTENSION
     Dosage: UNK
     Route: 048
  2. ASPIRIN [Concomitant]
  3. COUMADIN [Concomitant]

REACTIONS (6)
  - Knee arthroplasty [Unknown]
  - Cardiac valve disease [Unknown]
  - Arthralgia [Unknown]
  - Fall [Unknown]
  - Balance disorder [Unknown]
  - Contusion [Unknown]
